FAERS Safety Report 5830946-9 (Version None)
Quarter: 2008Q3

REPORT INFORMATION
  Report Type: 
  Country: None (occurrence: None)
  Receive Date: 20080801
  Receipt Date: 20080219
  Transmission Date: 20090109
  Serious: No
  Sender: FDA-Public Use
  Company Number: US-BRISTOL-MYERS SQUIBB COMPANY-14082119

PATIENT
  Age: 72 Year
  Sex: Male
  Weight: 96 kg

DRUGS (6)
  1. COUMADIN [Suspect]
     Dosage: DOSE WAS 2MG DAILY 2 DAYS A WEEK AND 3MG DAILY 5 DAYS
  2. WARFARIN SODIUM [Suspect]
  3. GLYBURIDE [Concomitant]
  4. CLARITIN [Concomitant]
  5. TYLENOL [Concomitant]
  6. DILTIAZEM HCL [Concomitant]

REACTIONS (1)
  - URTICARIA [None]
